FAERS Safety Report 4279929-3 (Version None)
Quarter: 2004Q1

REPORT INFORMATION
  Report Type: 
  Country: None (occurrence: None)
  Receive Date: 20040126
  Receipt Date: 20040114
  Transmission Date: 20041129
  Serious: Yes (Hospitalization)
  Sender: FDA-Public Use
  Company Number: 2004193056GB

PATIENT
  Age: 79 Year
  Sex: Male
  Weight: 76 kg

DRUGS (4)
  1. ARTHROTEC [Suspect]
     Indication: BACK PAIN
     Dosage: 50 MG, QD; ORAL
     Route: 048
     Dates: start: 20030602, end: 20030618
  2. ATENOLOL [Concomitant]
  3. LOSARTAN [Concomitant]
  4. CARDURA [Concomitant]

REACTIONS (5)
  - ASTHENIA [None]
  - BLOOD ALKALINE PHOSPHATASE INCREASED [None]
  - OEDEMA PERIPHERAL [None]
  - POLYMYALGIA [None]
  - RED BLOOD CELL SEDIMENTATION RATE ABNORMAL [None]
